FAERS Safety Report 25958697 (Version 1)
Quarter: 2025Q4

REPORT INFORMATION
  Report Type: Report from Study
  Country: EU (occurrence: EU)
  Receive Date: 20251024
  Receipt Date: 20251024
  Transmission Date: 20260117
  Serious: Yes (Death, Other)
  Sender: ABBVIE
  Company Number: EU-ABBVIE-6517572

PATIENT
  Age: 82 Year
  Sex: Female

DRUGS (2)
  1. CARBIDOPA\LEVODOPA [Suspect]
     Active Substance: CARBIDOPA\LEVODOPA
     Indication: Parkinson^s disease
     Route: 050
     Dates: start: 20210513
  2. CARBIDOPA\LEVODOPA [Suspect]
     Active Substance: CARBIDOPA\LEVODOPA

REACTIONS (4)
  - Cerebral haematoma [Fatal]
  - Fall [Not Recovered/Not Resolved]
  - Loss of consciousness [Not Recovered/Not Resolved]
  - Cardio-respiratory arrest [Fatal]

NARRATIVE: CASE EVENT DATE: 20251012
